FAERS Safety Report 8770428 (Version 1)
Quarter: 2012Q4

REPORT INFORMATION
  Report Type: 
  Country: US (occurrence: US)
  Receive Date: 20120906
  Receipt Date: 20120906
  Transmission Date: 20130627
  Serious: Yes (Hospitalization)
  Sender: FDA-Public Use
  Company Number: US-AMGEN-USASP2012055998

PATIENT
  Age: 51 Year
  Sex: Female

DRUGS (1)
  1. ENBREL [Suspect]
     Indication: PSORIATIC ARTHROPATHY
     Dosage: 25 mg, 2 times/wk
     Route: 058
     Dates: start: 20090422

REACTIONS (9)
  - Renal impairment [Recovered/Resolved]
  - Dehydration [Recovered/Resolved]
  - Dysuria [Recovered/Resolved]
  - Blood creatinine increased [Recovered/Resolved]
  - Hypotension [Recovered/Resolved]
  - Oropharyngeal pain [Not Recovered/Not Resolved]
  - Constipation [Recovered/Resolved]
  - Nasopharyngitis [Not Recovered/Not Resolved]
  - Psoriasis [Not Recovered/Not Resolved]
